FAERS Safety Report 11444630 (Version 1)
Quarter: 2015Q3

REPORT INFORMATION
  Report Type: Spontaneous
  Country: US (occurrence: None)
  Receive Date: 20150831
  Receipt Date: 20150831
  Transmission Date: 20151125
  Serious: Yes (Disabling, Other)
  Sender: FDA-Public Use
  Company Number: None

PATIENT
  Age: 34 Year
  Sex: Female
  Weight: 80.29 kg

DRUGS (4)
  1. TOPIRAMATE 50MG [Suspect]
     Active Substance: TOPIRAMATE
     Indication: MIGRAINE
     Route: 048
     Dates: start: 20150807, end: 20150811
  2. EFFEXOR [Concomitant]
     Active Substance: VENLAFAXINE HYDROCHLORIDE
  3. AMBIEN [Concomitant]
     Active Substance: ZOLPIDEM TARTRATE
  4. SYTHROID [Concomitant]

REACTIONS (15)
  - Diplopia [None]
  - Disturbance in attention [None]
  - Constipation [None]
  - Nausea [None]
  - Decreased appetite [None]
  - Temperature intolerance [None]
  - Loss of consciousness [None]
  - Amnesia [None]
  - Hypoaesthesia [None]
  - Migraine [None]
  - Somnolence [None]
  - Cardiac flutter [None]
  - Neuropathy peripheral [None]
  - Pruritus generalised [None]
  - Paraesthesia [None]

NARRATIVE: CASE EVENT DATE: 20150807
